FAERS Safety Report 20628156 (Version 1)
Quarter: 2022Q1

REPORT INFORMATION
  Report Type: Report from Study
  Country: IT (occurrence: IT)
  Receive Date: 20220323
  Receipt Date: 20220323
  Transmission Date: 20220423
  Serious: Yes (Other)
  Sender: FDA-Public Use
  Company Number: None

PATIENT
  Age: 86 Year
  Sex: Female
  Weight: 130 kg

DRUGS (7)
  1. PRADAXA [Suspect]
     Active Substance: DABIGATRAN ETEXILATE MESYLATE
     Indication: Atrial fibrillation
     Route: 048
     Dates: end: 20220225
  2. CALCIO CARBONATO EG 1 G COMPRESSE EFFERVESCENTI [Concomitant]
     Indication: Product used for unknown indication
     Route: 048
     Dates: end: 20220225
  3. ANNISTER 10.000 U.I./ML GOCCE ORALI, SOLUZIONE [Concomitant]
     Indication: Product used for unknown indication
     Route: 048
     Dates: end: 20220225
  4. ALDACTONE [Concomitant]
     Active Substance: SPIRONOLACTONE
     Indication: Product used for unknown indication
     Route: 048
     Dates: end: 20220225
  5. CONGESCOR 2,5 MG, COMPRESSE FILM-RIVESTITE [Concomitant]
     Indication: Product used for unknown indication
     Route: 048
     Dates: end: 20220225
  6. MYCOSTATIN 100.000 U.I./ML SOSPENSIONE ORALE [Concomitant]
     Indication: Product used for unknown indication
     Route: 048
     Dates: end: 20220225
  7. LASIX [Concomitant]
     Active Substance: FUROSEMIDE
     Indication: Product used for unknown indication
     Route: 048
     Dates: end: 20220225

REACTIONS (1)
  - Drug level increased [Recovered/Resolved]

NARRATIVE: CASE EVENT DATE: 20220217
